FAERS Safety Report 8335343-2 (Version None)
Quarter: 2012Q2

REPORT INFORMATION
  Report Type: 
  Country: None (occurrence: None)
  Receive Date: 20120503
  Receipt Date: 20120427
  Transmission Date: 20120825
  Serious: Yes (Hospitalization)
  Sender: FDA-Public Use
  Company Number: CA-ABBOTT-12P-028-0931284-00

PATIENT
  Sex: Male
  Weight: 104.42 kg

DRUGS (2)
  1. HUMIRA [Suspect]
     Indication: CROHN'S DISEASE
     Route: 058
     Dates: start: 20120403, end: 20120403
  2. IMURAN [Concomitant]
     Indication: CROHN'S DISEASE
     Route: 048

REACTIONS (6)
  - CROHN'S DISEASE [None]
  - SERUM SICKNESS [None]
  - DECREASED APPETITE [None]
  - HEADACHE [None]
  - ARTHRALGIA [None]
  - PYREXIA [None]
